FAERS Safety Report 21207954 (Version 13)
Quarter: 2023Q2

REPORT INFORMATION
  Report Type: Spontaneous
  Country: US (occurrence: US)
  Receive Date: 20220812
  Receipt Date: 20230508
  Transmission Date: 20230722
  Serious: Yes (Other)
  Sender: FDA-Public Use
  Company Number: US-PFIZER INC-PV202200041407

PATIENT
  Age: 62 Year
  Sex: Female

DRUGS (2)
  1. IBRANCE [Suspect]
     Active Substance: PALBOCICLIB
     Dosage: 125 MG
  2. FENTANYL [Suspect]
     Active Substance: FENTANYL
     Dosage: UNK

REACTIONS (22)
  - Renal impairment [Unknown]
  - Pulmonary oedema [Unknown]
  - Diarrhoea [Recovered/Resolved]
  - Abdominal pain [Recovered/Resolved]
  - Fatigue [Not Recovered/Not Resolved]
  - Asthenia [Unknown]
  - Sleep disorder [Unknown]
  - Nausea [Recovering/Resolving]
  - Alopecia [Unknown]
  - Restless legs syndrome [Unknown]
  - Middle insomnia [Unknown]
  - Pruritus [Unknown]
  - Decreased appetite [Unknown]
  - Dyspnoea exertional [Unknown]
  - White blood cell count decreased [Unknown]
  - Constipation [Recovering/Resolving]
  - Illness [Unknown]
  - Back pain [Unknown]
  - Lung disorder [Unknown]
  - Abdominal distension [Unknown]
  - Flatulence [Unknown]
  - Abdominal discomfort [Unknown]

NARRATIVE: CASE EVENT DATE: 20220911
